FAERS Safety Report 4981666-4 (Version None)
Quarter: 2006Q2

REPORT INFORMATION
  Report Type: 
  Country: None (occurrence: None)
  Receive Date: 20060425
  Receipt Date: 20060208
  Transmission Date: 20061013
  Serious: No
  Sender: FDA-Public Use
  Company Number: US-GLAXOSMITHKLINE-A0592881A

PATIENT
  Age: 48 Year
  Sex: Male

DRUGS (5)
  1. LEXIVA [Suspect]
     Indication: HIV INFECTION
     Dosage: 700MG TWICE PER DAY
     Route: 048
     Dates: start: 20050101
  2. NORVIR [Concomitant]
  3. TRUVADA [Concomitant]
  4. LORAZEPAM [Concomitant]
  5. PROTONIX [Concomitant]

REACTIONS (1)
  - ABDOMINAL PAIN UPPER [None]
